FAERS Safety Report 24379420 (Version 4)
Quarter: 2024Q4

REPORT INFORMATION
  Report Type: Spontaneous
  Country: CH (occurrence: CH)
  Receive Date: 20240930
  Receipt Date: 20241016
  Transmission Date: 20250115
  Serious: Yes (Other)
  Sender: SANOFI AVENTIS
  Company Number: CH-SA-2024SA268975

PATIENT
  Age: 39 Year
  Sex: Female

DRUGS (4)
  1. ENOXAPARIN SODIUM [Suspect]
     Active Substance: ENOXAPARIN SODIUM
     Dosage: 1 SYRINGE FROM DAY ONE OF THE MENSTRUAL CYCLE UNTIL THE EMERGENCY C-SECTION
     Dates: end: 20240716
  2. ASPIRIN [Concomitant]
     Active Substance: ASPIRIN
     Dosage: 1X DAILY
  3. LEVOTHYROXINE SODIUM [Concomitant]
     Active Substance: LEVOTHYROXINE SODIUM
     Dosage: UNK
  4. PROGESTERONE [Concomitant]
     Active Substance: PROGESTERONE
     Dosage: UNK

REACTIONS (7)
  - HELLP syndrome [Recovered/Resolved]
  - Skin discolouration [Not Recovered/Not Resolved]
  - Haematoma [Not Recovered/Not Resolved]
  - Pre-eclampsia [Not Recovered/Not Resolved]
  - Contusion [Not Recovered/Not Resolved]
  - Maternal exposure during pregnancy [Unknown]
  - Caesarean section [Unknown]

NARRATIVE: CASE EVENT DATE: 20240601
